FAERS Safety Report 25341197 (Version 1)
Quarter: 2025Q2

REPORT INFORMATION
  Report Type: Spontaneous
  Country: US (occurrence: US)
  Receive Date: 20250521
  Receipt Date: 20250521
  Transmission Date: 20250716
  Serious: No
  Sender: RECKITT BENCKISER
  Company Number: US-PROD-AS2-212756134-20-24-USA-RB-0000707

PATIENT
  Age: 85 Year
  Sex: Female
  Weight: 77.111 kg

DRUGS (2)
  1. MUCINEX DM [Suspect]
     Active Substance: DEXTROMETHORPHAN HYDROBROMIDE\GUAIFENESIN
     Indication: Cough
     Dosage: TOOK 2 TABLET IN TOTAL
     Route: 048
     Dates: start: 20240526, end: 20240527
  2. MUCINEX DM [Suspect]
     Active Substance: DEXTROMETHORPHAN HYDROBROMIDE\GUAIFENESIN
     Indication: Productive cough

REACTIONS (2)
  - Nausea [Recovered/Resolved]
  - Product packaging issue [Unknown]

NARRATIVE: CASE EVENT DATE: 20240526
